FAERS Safety Report 19157776 (Version 1)
Quarter: 2021Q2

REPORT INFORMATION
  Report Type: Spontaneous
  Country: US (occurrence: US)
  Receive Date: 20210420
  Receipt Date: 20210420
  Transmission Date: 20210717
  Serious: No
  Sender: FDA-Public Use
  Company Number: US-ALLERGAN-2022965US

PATIENT
  Sex: Male

DRUGS (2)
  1. ACTONEL [Suspect]
     Active Substance: RISEDRONATE SODIUM
     Indication: PRODUCT USED FOR UNKNOWN INDICATION
     Dosage: 35 MG, Q WEEK
     Route: 048
     Dates: end: 202006
  2. ACTONEL [Suspect]
     Active Substance: RISEDRONATE SODIUM
     Route: 048

REACTIONS (6)
  - Muscular weakness [Recovering/Resolving]
  - Asthenia [Recovering/Resolving]
  - Atrial flutter [Recovered/Resolved]
  - Back pain [Recovering/Resolving]
  - Pain [Recovering/Resolving]
  - Gait inability [Recovered/Resolved]
